FAERS Safety Report 6126114-6 (Version None)
Quarter: 2009Q1

REPORT INFORMATION
  Report Type: 
  Country: None (occurrence: None)
  Receive Date: 20090320
  Receipt Date: 20090313
  Transmission Date: 20090719
  Serious: Yes (Hospitalization)
  Sender: FDA-Public Use
  Company Number: A0725144A

PATIENT
  Age: 71 Year
  Sex: Female
  Weight: 72.7 kg

DRUGS (2)
  1. AVANDIA [Suspect]
     Dosage: 8MG PER DAY
     Route: 065
     Dates: start: 20040818, end: 20070815
  2. ROSIGLITAZONE [Suspect]
     Dosage: 8MG TWICE PER DAY
     Route: 065
     Dates: start: 20061018, end: 20061118

REACTIONS (2)
  - CARDIAC FAILURE CONGESTIVE [None]
  - HEART INJURY [None]
